FAERS Safety Report 8885235 (Version 1)
Quarter: 2012Q4

REPORT INFORMATION
  Report Type: 
  Country: US (occurrence: US)
  Receive Date: 20121102
  Receipt Date: 20121102
  Transmission Date: 20130627
  Serious: No
  Sender: FDA-Public Use
  Company Number: US-PFIZER INC-2012267222

PATIENT
  Sex: Male
  Weight: 86.17 kg

DRUGS (4)
  1. LYRICA [Suspect]
     Indication: FIBROMYALGIA
     Dosage: 75 mg, 2x/day
     Route: 048
     Dates: start: 201110
  2. LYRICA [Suspect]
     Indication: BACK PAIN
     Dosage: 100 mg, 2x/day
     Route: 048
  3. LYRICA [Suspect]
     Dosage: 50 mg, 2x/day
     Route: 048
  4. LYRICA [Suspect]
     Dosage: 12.5 mg, 1x/day
     Route: 048

REACTIONS (4)
  - Drug intolerance [Unknown]
  - Dyskinesia [Not Recovered/Not Resolved]
  - Weight increased [Not Recovered/Not Resolved]
  - Agitation [Not Recovered/Not Resolved]
